FAERS Safety Report 17151762 (Version 1)
Quarter: 2019Q4

REPORT INFORMATION
  Report Type: Spontaneous
  Country: US (occurrence: US)
  Receive Date: 20191212
  Receipt Date: 20191212
  Transmission Date: 20200122
  Serious: Yes (Disabling)
  Sender: FDA-Public Use
  Company Number: None

PATIENT
  Age: 39 Year
  Sex: Female
  Weight: 65.25 kg

DRUGS (1)
  1. LUPRON [Suspect]
     Active Substance: LEUPROLIDE ACETATE
     Indication: OVARIAN CYST

REACTIONS (7)
  - Disease recurrence [None]
  - Malaise [None]
  - Hysterectomy [None]
  - Endometriosis [None]
  - Fibromyalgia [None]
  - Intervertebral disc protrusion [None]
  - Depression [None]

NARRATIVE: CASE EVENT DATE: 20060901
